FAERS Safety Report 5258271-8 (Version None)
Quarter: 2007Q1

REPORT INFORMATION
  Report Type: 
  Country: None (occurrence: None)
  Receive Date: 20070308
  Receipt Date: 20070301
  Transmission Date: 20070707
  Serious: Yes (Other)
  Sender: FDA-Public Use
  Company Number: ES-JNJFOC-20070300678

PATIENT
  Sex: Female

DRUGS (4)
  1. REMICADE [Suspect]
     Dosage: 3RD INFUSION
     Route: 042
  2. REMICADE [Suspect]
     Indication: RHEUMATOID ARTHRITIS
     Dosage: 2 INFUSIONS
     Route: 042
  3. METHOTREXATE [Concomitant]
     Route: 065
  4. CORTICOIDS [Concomitant]
     Route: 065

REACTIONS (1)
  - PSORIASIS [None]
